FAERS Safety Report 16354157 (Version 4)
Quarter: 2021Q1

REPORT INFORMATION
  Report Type: Spontaneous
  Country: CA (occurrence: CA)
  Receive Date: 20190524
  Receipt Date: 20210323
  Transmission Date: 20210419
  Serious: Yes (Life-Threatening, Hospitalization, Other)
  Sender: FDA-Public Use
  Company Number: CA-NAPPMUNDI-CAN-2019-0010071

PATIENT
  Age: 64 Year
  Sex: Male
  Weight: 70 kg

DRUGS (30)
  1. OXYCODONE HYDROCHLORIDE. [Suspect]
     Active Substance: OXYCODONE HYDROCHLORIDE
     Indication: PRODUCT USED FOR UNKNOWN INDICATION
     Dosage: UNK
     Route: 048
  2. LEVOTHYROXINE. [Suspect]
     Active Substance: LEVOTHYROXINE
     Indication: PRODUCT USED FOR UNKNOWN INDICATION
     Dosage: UNK
     Route: 048
  3. LOPERAMIDE [Suspect]
     Active Substance: LOPERAMIDE
     Indication: PRODUCT USED FOR UNKNOWN INDICATION
     Dosage: UNK
     Route: 048
  4. PANTOPRAZOLE [Suspect]
     Active Substance: PANTOPRAZOLE
     Dosage: UNK
     Route: 065
  5. ROSUVASTATIN. [Suspect]
     Active Substance: ROSUVASTATIN
     Indication: PRODUCT USED FOR UNKNOWN INDICATION
     Dosage: UNK
     Route: 048
  6. DOMPERIDONE [Concomitant]
     Active Substance: DOMPERIDONE
     Dosage: UNK
  7. CITALOPRAM HYDROBROMIDE. [Suspect]
     Active Substance: CITALOPRAM HYDROBROMIDE
     Indication: PRODUCT USED FOR UNKNOWN INDICATION
     Dosage: UNK
     Route: 048
  8. ROSUVASTATIN CALCIUM. [Suspect]
     Active Substance: ROSUVASTATIN CALCIUM
     Indication: PRODUCT USED FOR UNKNOWN INDICATION
     Dosage: UNK
     Route: 048
  9. OFEV [Suspect]
     Active Substance: NINTEDANIB
     Indication: PULMONARY FIBROSIS
     Dosage: 150 MG, BID [2 EVERY 1 DAYS]
     Route: 048
  10. OFEV [Suspect]
     Active Substance: NINTEDANIB
     Dosage: 100 MG, BID
     Route: 065
  11. OXYCODONE HYDROCHLORIDE. [Suspect]
     Active Substance: OXYCODONE HYDROCHLORIDE
     Dosage: UNK
  12. BUPROPION. [Suspect]
     Active Substance: BUPROPION
     Indication: PRODUCT USED FOR UNKNOWN INDICATION
     Dosage: UNK
     Route: 048
  13. DOMPERIDONE [Concomitant]
     Active Substance: DOMPERIDONE
     Dosage: UNK
  14. TECTA [Suspect]
     Active Substance: PANTOPRAZOLE MAGNESIUM
     Indication: PRODUCT USED FOR UNKNOWN INDICATION
     Dosage: UNK
     Route: 065
  15. NINTEDANIB ESILATE [Suspect]
     Active Substance: NINTEDANIB ESYLATE
     Dosage: 100 MG, BID
     Route: 048
  16. BUPROPION. [Suspect]
     Active Substance: BUPROPION
     Dosage: UNK
     Route: 048
  17. PANTOPRAZOLE SODIUM ANHYDROUS [Suspect]
     Active Substance: PANTOPRAZOLE SODIUM ANHYDROUS
     Indication: PRODUCT USED FOR UNKNOWN INDICATION
     Dosage: UNK
     Route: 048
  18. PROPRANOLOL HYDROCHLORIDE          /00030001/ [Suspect]
     Active Substance: PROPRANOLOL HYDROCHLORIDE
     Indication: PRODUCT USED FOR UNKNOWN INDICATION
     Dosage: UNK
     Route: 065
  19. NINTEDANIB ESILATE [Suspect]
     Active Substance: NINTEDANIB ESYLATE
     Indication: PULMONARY FIBROSIS
     Dosage: 150 MG, BID [2 EVERY 1 DAYS]
     Route: 048
  20. CITALOPRAM [Suspect]
     Active Substance: CITALOPRAM HYDROBROMIDE
     Indication: PRODUCT USED FOR UNKNOWN INDICATION
     Dosage: UNK
     Route: 048
  21. FESOTERODINE FUMARATE. [Suspect]
     Active Substance: FESOTERODINE FUMARATE
     Indication: PRODUCT USED FOR UNKNOWN INDICATION
     Dosage: UNK
     Route: 048
  22. LORAZEPAM. [Suspect]
     Active Substance: LORAZEPAM
     Indication: PRODUCT USED FOR UNKNOWN INDICATION
     Dosage: UNK
     Route: 048
  23. DOMPERIDONE [Concomitant]
     Active Substance: DOMPERIDONE
     Indication: PRODUCT USED FOR UNKNOWN INDICATION
     Route: 065
  24. NINTEDANIB ESILATE [Suspect]
     Active Substance: NINTEDANIB ESYLATE
     Dosage: 100 MG, BID
     Route: 048
  25. FESOTERODINE FUMARATE. [Suspect]
     Active Substance: FESOTERODINE FUMARATE
     Dosage: UNK
     Route: 048
  26. OFEV [Suspect]
     Active Substance: NINTEDANIB
     Dosage: 150 MG, Q24H [1 EVERY 24 HOURS]
     Route: 048
  27. PANTOPRAZOLE [Suspect]
     Active Substance: PANTOPRAZOLE
     Indication: PRODUCT USED FOR UNKNOWN INDICATION
     Dosage: UNK
     Route: 048
  28. PROPRANOLOL [Suspect]
     Active Substance: PROPRANOLOL HYDROCHLORIDE
     Indication: PRODUCT USED FOR UNKNOWN INDICATION
     Dosage: UNK
     Route: 048
  29. NINTEDANIB ESILATE [Suspect]
     Active Substance: NINTEDANIB ESYLATE
     Dosage: 150 MG, Q24H [1 EVERY 24 HOURS]
     Route: 048
  30. PROPRANOLOL HYDROCHLORIDE. [Suspect]
     Active Substance: PROPRANOLOL HYDROCHLORIDE
     Indication: PRODUCT USED FOR UNKNOWN INDICATION
     Dosage: UNK
     Route: 048

REACTIONS (10)
  - Overdose [Recovering/Resolving]
  - Pulseless electrical activity [Recovering/Resolving]
  - Aphasia [Recovering/Resolving]
  - Cerebral infarction [Recovering/Resolving]
  - Cerebrovascular accident [Recovering/Resolving]
  - Loss of consciousness [Recovering/Resolving]
  - Product use issue [Recovering/Resolving]
  - Transient ischaemic attack [Recovering/Resolving]
  - Amnesia [Recovering/Resolving]
  - Off label use [Recovering/Resolving]
